FAERS Safety Report 17964854 (Version 3)
Quarter: 2020Q3

REPORT INFORMATION
  Report Type: Report from Study
  Country: NL (occurrence: NL)
  Receive Date: 20200630
  Receipt Date: 20200728
  Transmission Date: 20201103
  Serious: Yes (Hospitalization)
  Sender: FDA-Public Use
  Company Number: NL-PFIZER INC-2020250460

PATIENT
  Age: 58 Year
  Sex: Male
  Weight: 80 kg

DRUGS (8)
  1. BINIMETINIB [Suspect]
     Active Substance: BINIMETINIB
     Indication: NON-SMALL CELL LUNG CANCER
     Dosage: 45 MG, TWICE DIALY CONTINUOUS
     Route: 048
     Dates: start: 20200625
  2. MACROGOL [Concomitant]
     Active Substance: POLYETHYLENE GLYCOLS
     Indication: CONSTIPATION PROPHYLAXIS
     Dosage: 1 SACHET, AS NEEDED
     Route: 048
     Dates: start: 20200622
  3. FENTANYL. [Concomitant]
     Active Substance: FENTANYL
     Indication: COUGH
     Dosage: 12 UG/HR, PLASTER, EVERY 3 DAYS
     Route: 062
     Dates: start: 20200616, end: 20200618
  4. ACETYLCYSTEINE. [Concomitant]
     Active Substance: ACETYLCYSTEINE
     Indication: COUGH
     Dosage: 600 MG, 1X/DAY
     Route: 048
     Dates: start: 20200615, end: 20200618
  5. ENCORAFENIB [Suspect]
     Active Substance: ENCORAFENIB
     Indication: NON-SMALL CELL LUNG CANCER
     Dosage: 450 MG, ONCE DAILY CONTINUOUS
     Route: 048
     Dates: start: 20200625
  6. CODEINE [Concomitant]
     Active Substance: CODEINE
     Indication: COUGH
     Dosage: 10 MG, AS NEEDED
     Route: 048
     Dates: start: 20200618, end: 20200619
  7. OXYCODON [Concomitant]
     Active Substance: OXYCODONE
     Indication: COUGH
     Dosage: 5 MG, AS NEEDED
     Route: 048
     Dates: start: 20200615
  8. PARACETAMOL [Concomitant]
     Active Substance: ACETAMINOPHEN
     Indication: PAIN PROPHYLAXIS
     Dosage: 1000 MG, AS NEEDED
     Route: 048
     Dates: start: 20200615

REACTIONS (1)
  - Presyncope [Recovered/Resolved]

NARRATIVE: CASE EVENT DATE: 20200625
